FAERS Safety Report 20973475 (Version 1)
Quarter: 2022Q2

REPORT INFORMATION
  Report Type: Spontaneous
  Country: US (occurrence: US)
  Receive Date: 20220617
  Receipt Date: 20220617
  Transmission Date: 20220721
  Serious: Yes (Other)
  Sender: FDA-Public Use
  Company Number: US-SUN PHARMACEUTICAL INDUSTRIES LTD-2022R1-341256

PATIENT
  Age: 63 Year
  Sex: Male

DRUGS (1)
  1. PREDNISONE [Suspect]
     Active Substance: PREDNISONE
     Indication: Renal tubular necrosis
     Dosage: 60 MILLIGRAM (10 DOSES)
     Route: 065

REACTIONS (1)
  - Therapy non-responder [Unknown]
